FAERS Safety Report 8444746-7 (Version None)
Quarter: 2012Q2

REPORT INFORMATION
  Report Type: 
  Country: None (occurrence: None)
  Receive Date: 20120618
  Receipt Date: 20120606
  Transmission Date: 20120825
  Serious: Yes (Hospitalization)
  Sender: FDA-Public Use
  Company Number: NL-MEDIMMUNE-MEDI-0015331

PATIENT
  Age: 10 Month
  Sex: Male
  Weight: 7 kg

DRUGS (3)
  1. SYNAGIS [Suspect]
     Route: 030
     Dates: start: 20120322
  2. SYNAGIS [Suspect]
     Route: 030
     Dates: start: 20120223, end: 20120223
  3. SYNAGIS [Suspect]
     Indication: PREMATURE BABY
     Route: 030
     Dates: start: 20110906, end: 20110906

REACTIONS (3)
  - BRONCHIOLITIS [None]
  - DYSPNOEA [None]
  - DECREASED APPETITE [None]
